FAERS Safety Report 6816479-1 (Version None)
Quarter: 2010Q3

REPORT INFORMATION
  Report Type: 
  Country: None (occurrence: None)
  Receive Date: 20100705
  Receipt Date: 20100622
  Transmission Date: 20110219
  Serious: Yes (Other)
  Sender: FDA-Public Use
  Company Number: PHHY2010US30934

PATIENT
  Sex: Female

DRUGS (6)
  1. DIOVAN HCT [Suspect]
     Dosage: 320/25 MG
  2. DIOVAN [Suspect]
     Dosage: 320 MG
  3. METOPROLOL TARTRATE [Concomitant]
     Dosage: 50 MG, UNK
  4. CITALOPRAM HYDROBROMIDE [Concomitant]
     Dosage: 20 MG, UNK
  5. SIMVASTATIN [Concomitant]
     Dosage: 80 MG, UNK
  6. ALENDRONATE SODIUM [Concomitant]
     Dosage: 70 MG, UNK

REACTIONS (2)
  - DRY EYE [None]
  - VISION BLURRED [None]
